FAERS Safety Report 19723945 (Version 1)
Quarter: 2021Q3

REPORT INFORMATION
  Report Type: Spontaneous
  Country: CA (occurrence: CA)
  Receive Date: 20210820
  Receipt Date: 20210820
  Transmission Date: 20211014
  Serious: Yes (Other)
  Sender: FDA-Public Use
  Company Number: CA-BEH-2021134382

PATIENT
  Age: 66 Year
  Sex: Male

DRUGS (4)
  1. CINRYZE [Concomitant]
     Active Substance: HUMAN C1-ESTERASE INHIBITOR
     Dosage: 1000 INTERNATIONAL UNIT
     Route: 042
     Dates: start: 2017
  2. LANADELUMAB [Concomitant]
     Active Substance: LANADELUMAB
     Dosage: 300 MILLIGRAM, QOW
     Route: 065
  3. DANAZOL. [Concomitant]
     Active Substance: DANAZOL
  4. C1?ESTERASE INHIBITOR (INN) [Suspect]
     Active Substance: HUMAN C1-ESTERASE INHIBITOR
     Dosage: UNK
     Route: 042

REACTIONS (1)
  - Unevaluable event [Unknown]
